FAERS Safety Report 16477098 (Version 1)
Quarter: 2019Q2

REPORT INFORMATION
  Report Type: Spontaneous
  Country: FR (occurrence: FR)
  Receive Date: 20190626
  Receipt Date: 20190626
  Transmission Date: 20190711
  Serious: Yes (Hospitalization)
  Sender: FDA-Public Use
  Company Number: FR-TEVA-2019-FR-1068037

PATIENT
  Sex: Female

DRUGS (12)
  1. DOXYCYCLINE. [Suspect]
     Active Substance: DOXYCYCLINE
     Indication: STAPHYLOCOCCAL INFECTION
     Dosage: UNINFORMED
     Route: 048
     Dates: start: 20190416, end: 20190515
  2. LASILIX [Concomitant]
     Active Substance: FUROSEMIDE
     Route: 048
  3. LEVOTHYROX [Concomitant]
     Active Substance: LEVOTHYROXINE
     Route: 048
  4. MESTINON 60 MG, COMPRIM? ENROB? [Concomitant]
  5. TRACLEER [Concomitant]
     Active Substance: BOSENTAN
  6. TEICOPLANINE [Suspect]
     Active Substance: TEICOPLANIN
     Indication: STAPHYLOCOCCAL INFECTION
     Dosage: UNINFORMED
     Route: 042
     Dates: start: 20190331, end: 20190416
  7. PLAQUENIL [Concomitant]
     Active Substance: HYDROXYCHLOROQUINE SULFATE
  8. ADCIRCA 20 MG, COMPRIME PELLICULE [Concomitant]
  9. COUMADINE [Concomitant]
     Active Substance: WARFARIN SODIUM
  10. INNOHEP [Concomitant]
     Active Substance: TINZAPARIN SODIUM
  11. RIFADINE [Suspect]
     Active Substance: RIFAMPIN
     Indication: STAPHYLOCOCCAL INFECTION
     Dosage: UNINFORMED
     Route: 042
     Dates: start: 20190331, end: 20190515
  12. IMUREL [Suspect]
     Active Substance: AZATHIOPRINE SODIUM
     Indication: SYSTEMIC LUPUS ERYTHEMATOSUS
     Dosage: 150 MILLIGRAM DAILY;
     Route: 048
     Dates: start: 20160924, end: 20190523

REACTIONS (2)
  - Pancytopenia [Recovering/Resolving]
  - Condition aggravated [Recovering/Resolving]

NARRATIVE: CASE EVENT DATE: 2018
